FAERS Safety Report 5877473-0 (Version None)
Quarter: 2008Q3

REPORT INFORMATION
  Report Type: 
  Country: None (occurrence: None)
  Receive Date: 20080909
  Receipt Date: 20080825
  Transmission Date: 20090109
  Serious: No
  Sender: FDA-Public Use
  Company Number: 08-440

PATIENT
  Age: 68 Year
  Sex: Male
  Weight: 88.4514 kg

DRUGS (5)
  1. ALEVE [Suspect]
     Indication: INJECTION SITE PAIN
     Dosage: DAILY, ORAL
     Route: 048
     Dates: start: 20080813, end: 20080815
  2. NEUPOGEN [Concomitant]
  3. CHEMOTHERAPY NOS [Concomitant]
  4. HIGH BLOOD PRESSURE MEDICATION NOS [Concomitant]
  5. CHOLESTEROL MEDICATION NOS [Concomitant]

REACTIONS (1)
  - RENAL FUNCTION TEST ABNORMAL [None]
